FAERS Safety Report 10447952 (Version 4)
Quarter: 2014Q3

REPORT INFORMATION
  Report Type: Spontaneous
  Country: JP (occurrence: JP)
  Receive Date: 20140911
  Receipt Date: 20140923
  Transmission Date: 20150326
  Serious: Yes (Death, Other)
  Sender: FDA-Public Use
  Company Number: JP-JNJFOC-20140814092

PATIENT
  Age: 88 Year
  Sex: Male

DRUGS (1)
  1. TRAMCET [Suspect]
     Active Substance: ACETAMINOPHEN\TRAMADOL
     Indication: PRODUCT USED FOR UNKNOWN INDICATION
     Route: 048
     Dates: start: 20140806, end: 20140809

REACTIONS (10)
  - Bundle branch block left [Unknown]
  - Dizziness [Unknown]
  - Sedation [Unknown]
  - Renal function test abnormal [Unknown]
  - Bladder dilatation [Unknown]
  - Pneumonia aspiration [Fatal]
  - Aphagia [Unknown]
  - Cerebral infarction [Unknown]
  - Blood creatine phosphokinase increased [Unknown]
  - Anaemia [Unknown]

NARRATIVE: CASE EVENT DATE: 2014
